FAERS Safety Report 10646634 (Version 1)
Quarter: 2014Q4

REPORT INFORMATION
  Report Type: Spontaneous
  Country: BR (occurrence: BR)
  Receive Date: 20141211
  Receipt Date: 20141211
  Transmission Date: 20150529
  Serious: Yes (Death, Hospitalization)
  Sender: FDA-Public Use
  Company Number: BR-PFIZER INC-2014338157

PATIENT
  Age: 66 Year
  Sex: Male
  Weight: 45 kg

DRUGS (1)
  1. SUTENT [Suspect]
     Active Substance: SUNITINIB MALATE
     Indication: RENAL CELL CARCINOMA
     Dosage: 50 MG, CYCLIC (4 PER 2), 1X/DAY
     Route: 048
     Dates: start: 20140929, end: 20141026

REACTIONS (3)
  - Platelet count decreased [Unknown]
  - Death [Fatal]
  - Asthenia [Unknown]

NARRATIVE: CASE EVENT DATE: 2014
